FAERS Safety Report 9412188 (Version 4)
Quarter: 2013Q3

REPORT INFORMATION
  Report Type: Report from Study
  Country: CA (occurrence: CA)
  Receive Date: 20130722
  Receipt Date: 20130912
  Transmission Date: 20140515
  Serious: Yes (Other)
  Sender: FDA-Public Use
  Company Number: CA-ROCHE-1193707

PATIENT
  Age: 71 Year
  Sex: Female
  Weight: 50 kg

DRUGS (8)
  1. ACTEMRA [Suspect]
     Indication: RHEUMATOID ARTHRITIS
     Route: 042
     Dates: start: 20110815
  2. ACTEMRA [Suspect]
     Route: 065
     Dates: start: 20130123
  3. ACTEMRA [Suspect]
     Route: 065
     Dates: start: 20130402
  4. SYNTHROID [Concomitant]
  5. NEXIUM [Concomitant]
  6. CITALOPRAM [Concomitant]
  7. VOLTAREN [Concomitant]
     Route: 065
  8. PROLIA [Concomitant]

REACTIONS (6)
  - Ankle fracture [Recovering/Resolving]
  - Pain in extremity [Recovering/Resolving]
  - Nasopharyngitis [Not Recovered/Not Resolved]
  - Bronchitis [Recovered/Resolved]
  - Bronchopneumonia [Recovered/Resolved]
  - Decreased appetite [Not Recovered/Not Resolved]
